FAERS Safety Report 4759400-2 (Version None)
Quarter: 2005Q3

REPORT INFORMATION
  Report Type: 
  Country: None (occurrence: None)
  Receive Date: 20050831
  Receipt Date: 20050817
  Transmission Date: 20060218
  Serious: Yes (Hospitalization)
  Sender: FDA-Public Use
  Company Number: 2005BI015689

PATIENT
  Age: 21 Year
  Sex: Female

DRUGS (2)
  1. AVONEX [Suspect]
     Indication: MULTIPLE SCLEROSIS
     Dosage: 30 UG;QW;IM
     Route: 030
     Dates: start: 20030722
  2. AVONEX [Suspect]
     Indication: MULTIPLE SCLEROSIS
     Dosage: 30 UG;QW;IM
     Route: 030

REACTIONS (18)
  - AGEUSIA [None]
  - BALANCE DISORDER [None]
  - DIFFICULTY IN WALKING [None]
  - DYSPHAGIA [None]
  - FATIGUE [None]
  - HEMIPARESIS [None]
  - HICCUPS [None]
  - HYPOAESTHESIA ORAL [None]
  - MEMORY IMPAIRMENT [None]
  - MULTIPLE SCLEROSIS RELAPSE [None]
  - ORAL INTAKE REDUCED [None]
  - PAIN [None]
  - PNEUMONIA ASPIRATION [None]
  - PULMONARY THROMBOSIS [None]
  - SINUSITIS [None]
  - STOMACH DISCOMFORT [None]
  - VISUAL DISTURBANCE [None]
  - VOMITING [None]
